FAERS Safety Report 24646761 (Version 1)
Quarter: 2024Q4

REPORT INFORMATION
  Report Type: Spontaneous
  Country: US (occurrence: None)
  Receive Date: 20241120
  Receipt Date: 20241120
  Transmission Date: 20250114
  Serious: Yes (unspecified)
  Sender: Public
  Company Number: None

PATIENT
  Age: 64 Year
  Sex: Female

DRUGS (1)
  1. POMALYST [Suspect]
     Active Substance: POMALIDOMIDE
     Indication: Plasma cell myeloma
     Dosage: 2MG QD ORAL?
     Route: 048
     Dates: start: 20161213, end: 20240822

REACTIONS (2)
  - Cytopenia [None]
  - Therapy interrupted [None]

NARRATIVE: CASE EVENT DATE: 20241011
